FAERS Safety Report 9370995 (Version 1)
Quarter: 2013Q2

REPORT INFORMATION
  Report Type: Spontaneous
  Country: AU (occurrence: AU)
  Receive Date: 20130627
  Receipt Date: 20130627
  Transmission Date: 20140414
  Serious: Yes (Other)
  Sender: FDA-Public Use
  Company Number: AU-AMGEN-AUSSP2013043941

PATIENT
  Age: 78 Year
  Sex: Male

DRUGS (1)
  1. ARANESP [Suspect]
     Indication: ANAEMIA
     Dosage: 100 MUG, QWK
     Route: 058

REACTIONS (2)
  - Haemoglobin decreased [Not Recovered/Not Resolved]
  - Therapeutic response decreased [Not Recovered/Not Resolved]
